FAERS Safety Report 6198847-7 (Version None)
Quarter: 2009Q2

REPORT INFORMATION
  Report Type: 
  Country: None (occurrence: None)
  Receive Date: 20090520
  Receipt Date: 20090520
  Transmission Date: 20091009
  Serious: Yes (Hospitalization, Other)
  Sender: FDA-Public Use
  Company Number: None

PATIENT
  Age: 75 Year
  Sex: Female

DRUGS (2)
  1. ISOVUE-300 [Suspect]
     Indication: COMPUTERISED TOMOGRAM
     Dosage: 125MLS ONCE IV
     Route: 042
     Dates: start: 20090514, end: 20090515
  2. ISOVUE-300 [Suspect]

REACTIONS (3)
  - ASTHMA [None]
  - DYSPNOEA [None]
  - PHARYNGEAL OEDEMA [None]
